FAERS Safety Report 16116363 (Version 2)
Quarter: 2019Q2

REPORT INFORMATION
  Report Type: Spontaneous
  Country: JP (occurrence: JP)
  Receive Date: 20190326
  Receipt Date: 20190403
  Transmission Date: 20190711
  Serious: No
  Sender: FDA-Public Use
  Company Number: JP-GLAXOSMITHKLINE-JP2019JPN052783

PATIENT

DRUGS (1)
  1. ALLERMIST [Suspect]
     Active Substance: FLUTICASONE FUROATE
     Dosage: UNK
     Route: 045

REACTIONS (1)
  - Expired product administered [Unknown]
